FAERS Safety Report 11918524 (Version 1)
Quarter: 2016Q1

REPORT INFORMATION
  Report Type: Spontaneous
  Country: US (occurrence: US)
  Receive Date: 20160115
  Receipt Date: 20160115
  Transmission Date: 20160526
  Serious: No
  Sender: FDA-Public Use
  Company Number: US-009507513-1601USA003556

PATIENT
  Age: 83 Year
  Sex: Male

DRUGS (5)
  1. EMEND [Suspect]
     Active Substance: APREPITANT
     Indication: VOMITING
     Dosage: 150 MG, EVERY 3 WEEKS
     Route: 042
     Dates: start: 20130108, end: 20160108
  2. FLUOROURACIL. [Concomitant]
     Active Substance: FLUOROURACIL
  3. FOLINIC ACID [Concomitant]
     Active Substance: LEUCOVORIN
  4. OXALIPLATIN. [Concomitant]
     Active Substance: OXALIPLATIN
  5. HERCEPTIN [Concomitant]
     Active Substance: TRASTUZUMAB

REACTIONS (1)
  - Cough [Unknown]

NARRATIVE: CASE EVENT DATE: 201512
